FAERS Safety Report 11989569 (Version 2)
Quarter: 2016Q1

REPORT INFORMATION
  Report Type: Spontaneous
  Country: GB (occurrence: GB)
  Receive Date: 20160202
  Receipt Date: 20160203
  Transmission Date: 20160526
  Serious: Yes (Disabling)
  Sender: FDA-Public Use
  Company Number: GB-AMGEN-GBRSP2016009607

PATIENT
  Age: 78 Year
  Sex: Female
  Weight: 74 kg

DRUGS (7)
  1. NICORANDIL [Concomitant]
     Active Substance: NICORANDIL
     Dosage: 10 MG, BID
  2. LOSARTAN. [Concomitant]
     Active Substance: LOSARTAN
     Dosage: 50 MG, UNK
  3. ADCAL D3 [Concomitant]
     Active Substance: CALCIUM CARBONATE\CHOLECALCIFEROL
  4. BISOPROLOL [Concomitant]
     Active Substance: BISOPROLOL
     Dosage: 1.25 MG, UNK
  5. PROLIA [Suspect]
     Active Substance: DENOSUMAB
     Indication: OSTEOPOROTIC FRACTURE
     Dosage: 60 MG, UNK
     Route: 058
     Dates: start: 20151230
  6. ASPIRIN                            /00002701/ [Concomitant]
     Active Substance: ASPIRIN
  7. FRUSEMIDE                          /00032601/ [Concomitant]
     Active Substance: FUROSEMIDE
     Dosage: 40 MG, UNK

REACTIONS (8)
  - Oral mucosal blistering [Unknown]
  - Oral pain [Unknown]
  - Epistaxis [Unknown]
  - Pain in jaw [Unknown]
  - Loose tooth [Unknown]
  - Mucosal infection [Recovering/Resolving]
  - Bone swelling [Recovered/Resolved]
  - Gingivitis [Recovering/Resolving]

NARRATIVE: CASE EVENT DATE: 20151231
